FAERS Safety Report 8122040-1 (Version None)
Quarter: 2012Q1

REPORT INFORMATION
  Report Type: 
  Country: None (occurrence: None)
  Receive Date: 20120208
  Receipt Date: 20120127
  Transmission Date: 20120608
  Serious: Yes (Hospitalization)
  Sender: FDA-Public Use
  Company Number: US-BAYER-2011-042302

PATIENT
  Age: 48 Year
  Sex: Female
  Weight: 72.562 kg

DRUGS (4)
  1. HERBAL PREPARATION [Concomitant]
  2. FINIROL [Concomitant]
     Indication: MIGRAINE
     Dosage: UNK
     Dates: start: 19870101, end: 20100101
  3. LEVOTHYROXINE SODIUM [Concomitant]
     Indication: HYPOTHYROIDISM
     Dosage: UNK
     Dates: start: 20060101, end: 20100101
  4. YASMIN [Suspect]
     Dosage: UNK
     Dates: start: 20051201, end: 20060701

REACTIONS (6)
  - CHEST PAIN [None]
  - INJURY [None]
  - EMOTIONAL DISTRESS [None]
  - PULMONARY EMBOLISM [None]
  - ANXIETY [None]
  - GENERAL PHYSICAL HEALTH DETERIORATION [None]
